FAERS Safety Report 10598356 (Version 5)
Quarter: 2015Q2

REPORT INFORMATION
  Report Type: Report from Study
  Country: US (occurrence: US)
  Receive Date: 20141121
  Receipt Date: 20150625
  Transmission Date: 20150821
  Serious: Yes (Death, Hospitalization)
  Sender: FDA-Public Use
  Company Number: US-SA-2014SA158176

PATIENT
  Age: 55 Year
  Sex: Female

DRUGS (13)
  1. ALLOPURINOL. [Concomitant]
     Active Substance: ALLOPURINOL
  2. METRONIDAZOLE. [Concomitant]
     Active Substance: METRONIDAZOLE
  3. POTASSIUM [Concomitant]
     Active Substance: POTASSIUM
  4. VICODIN [Concomitant]
     Active Substance: ACETAMINOPHEN\HYDROCODONE BITARTRATE
  5. AUBAGIO [Suspect]
     Active Substance: TERIFLUNOMIDE
     Indication: MULTIPLE SCLEROSIS
     Route: 048
     Dates: start: 20141030
  6. GABAPENTIN. [Concomitant]
     Active Substance: GABAPENTIN
  7. LIPITOR [Concomitant]
     Active Substance: ATORVASTATIN CALCIUM
  8. FUROSEMIDE. [Concomitant]
     Active Substance: FUROSEMIDE
  9. XARELTO [Concomitant]
     Active Substance: RIVAROXABAN
  10. NOVOLOG [Concomitant]
     Active Substance: INSULIN ASPART
  11. ALPRAZOLAM. [Concomitant]
     Active Substance: ALPRAZOLAM
  12. NYSTATIN. [Concomitant]
     Active Substance: NYSTATIN
  13. BACLOFEN. [Concomitant]
     Active Substance: BACLOFEN

REACTIONS (9)
  - Muscular weakness [Not Recovered/Not Resolved]
  - Pulmonary embolism [Unknown]
  - Dysstasia [Unknown]
  - Dyspnoea [Unknown]
  - Cardiac failure congestive [Fatal]
  - Multiple sclerosis relapse [Unknown]
  - Dysarthria [Not Recovered/Not Resolved]
  - Activities of daily living impaired [Unknown]
  - Gait disturbance [Unknown]

NARRATIVE: CASE EVENT DATE: 2014
